FAERS Safety Report 7323255-2 (Version None)
Quarter: 2011Q1

REPORT INFORMATION
  Report Type: 
  Country: None (occurrence: None)
  Receive Date: 20110217
  Receipt Date: 20110204
  Transmission Date: 20110831
  Serious: Yes (Hospitalization)
  Sender: FDA-Public Use
  Company Number: 026144

PATIENT
  Sex: Female
  Weight: 36.2 kg

DRUGS (16)
  1. TOPIRAMATE [Concomitant]
  2. LAMICTAL [Concomitant]
  3. SLOW-FE [Concomitant]
  4. MAGNESIUM OXIDE [Concomitant]
  5. DIAZEPAM [Concomitant]
  6. PHENYTOIN [Suspect]
     Indication: EPILEPSY
     Dosage: SEE IMAGE: ORAL
     Route: 048
     Dates: start: 20110119
  7. PHENYTOIN [Suspect]
     Indication: EPILEPSY
     Dosage: SEE IMAGE: ORAL
     Route: 048
     Dates: start: 20110120, end: 20110121
  8. PHENYTOIN [Suspect]
     Indication: EPILEPSY
     Dosage: SEE IMAGE: ORAL
     Route: 048
     Dates: end: 20110118
  9. KEPPRA [Suspect]
     Indication: EPILEPSY
     Dosage: SEE IMAGE: ORAL
     Route: 048
     Dates: start: 20101116, end: 20101129
  10. KEPPRA [Suspect]
     Indication: EPILEPSY
     Dosage: SEE IMAGE: ORAL
     Route: 048
     Dates: start: 20101102, end: 20101115
  11. KEPPRA [Suspect]
     Indication: EPILEPSY
     Dosage: SEE IMAGE: ORAL
     Route: 048
     Dates: start: 20101228, end: 20110111
  12. KEPPRA [Suspect]
     Indication: EPILEPSY
     Dosage: SEE IMAGE: ORAL
     Route: 048
     Dates: start: 20110112, end: 20110116
  13. KEPPRA [Suspect]
     Indication: EPILEPSY
     Dosage: SEE IMAGE: ORAL
     Route: 048
     Dates: start: 20110117, end: 20110120
  14. KEPPRA [Suspect]
     Indication: EPILEPSY
     Dosage: SEE IMAGE: ORAL
     Route: 048
     Dates: start: 20101130, end: 20101213
  15. KEPPRA [Suspect]
     Indication: EPILEPSY
     Dosage: SEE IMAGE: ORAL
     Route: 048
     Dates: start: 20101214, end: 20101227
  16. ALLELOCK [Concomitant]

REACTIONS (5)
  - ANTICONVULSANT DRUG LEVEL DECREASED [None]
  - EYE MOVEMENT DISORDER [None]
  - STATUS EPILEPTICUS [None]
  - GRAND MAL CONVULSION [None]
  - DRUG INTERACTION [None]
